FAERS Safety Report 9114011 (Version 1)
Quarter: 2013Q1

REPORT INFORMATION
  Report Type: Spontaneous
  Country: US (occurrence: None)
  Receive Date: 20130220
  Receipt Date: 20130220
  Transmission Date: 20140127
  Serious: Yes (Hospitalization)
  Sender: FDA-Public Use
  Company Number: None

PATIENT
  Sex: Male
  Weight: 116.8 kg

DRUGS (3)
  1. 5-FLUOROURACIL [Suspect]
  2. LEUCOVORIN CALCIUM [Suspect]
  3. OXALIPLATIN [Suspect]

REACTIONS (16)
  - Atrial fibrillation [None]
  - Atrial flutter [None]
  - Tachycardia [None]
  - Asthenia [None]
  - Fatigue [None]
  - Hypertension [None]
  - Hypocalcaemia [None]
  - Nausea [None]
  - Vomiting [None]
  - Abdominal pain upper [None]
  - Dizziness [None]
  - Leukopenia [None]
  - Thrombocytopenia [None]
  - Anaemia [None]
  - Decreased appetite [None]
  - Thyroxine increased [None]
